FAERS Safety Report 14947364 (Version 1)
Quarter: 2018Q2

REPORT INFORMATION
  Report Type: Spontaneous
  Country: US (occurrence: US)
  Receive Date: 20180529
  Receipt Date: 20180529
  Transmission Date: 20180711
  Serious: No
  Sender: FDA-Public Use
  Company Number: US-WEST-WARD PHARMACEUTICALS CORP.-US-H14001-17-03130

PATIENT
  Sex: Female

DRUGS (2)
  1. XELJANZ [Suspect]
     Active Substance: TOFACITINIB CITRATE
     Indication: RHEUMATOID ARTHRITIS
     Route: 048
     Dates: start: 201609, end: 201706
  2. PREDNISONE. [Suspect]
     Active Substance: PREDNISONE
     Indication: ALLERGY TO ARTHROPOD BITE
     Route: 065

REACTIONS (3)
  - Condition aggravated [Unknown]
  - Pruritus [Unknown]
  - Pain [Unknown]
